FAERS Safety Report 9303158 (Version 1)
Quarter: 2013Q1

REPORT INFORMATION
  Report Type: Spontaneous
  Country: US (occurrence: None)
  Receive Date: 20130116
  Receipt Date: 20130116
  Transmission Date: 20140127
  Serious: Yes (Hospitalization)
  Sender: FDA-Public Use
  Company Number: 2012EXPUS00053

PATIENT
  Age: 53 Year
  Sex: Male
  Weight: 151.9 kg

DRUGS (1)
  1. EXPAREL [Suspect]
     Indication: POSTOPERATIVE ANALGESIA
     Dosage: UNK,  1X,  INTRADERMAL?10/01/2012  TO  10/01/2012
     Route: 023
     Dates: start: 20121001, end: 20121001

REACTIONS (2)
  - Staphylococcal abscess [None]
  - Implant site infection [None]
